FAERS Safety Report 17983989 (Version 1)
Quarter: 2020Q3

REPORT INFORMATION
  Report Type: Spontaneous
  Country: US (occurrence: US)
  Receive Date: 20200706
  Receipt Date: 20200706
  Transmission Date: 20201103
  Serious: No
  Sender: FDA-Public Use
  Company Number: US-ALVOGEN-2020-ALVOGEN-108899

PATIENT
  Age: 51 Year
  Sex: Female

DRUGS (1)
  1. GRALISE [Suspect]
     Active Substance: GABAPENTIN
     Indication: NEOPLASM MALIGNANT
     Dosage: GRALISE 600 MG
     Route: 048

REACTIONS (2)
  - Gastroenteritis viral [Unknown]
  - Product use in unapproved indication [Unknown]
